FAERS Safety Report 7302111-X (Version None)
Quarter: 2011Q1

REPORT INFORMATION
  Report Type: 
  Country: None (occurrence: None)
  Receive Date: 20110218
  Receipt Date: 20110210
  Transmission Date: 20110831
  Serious: Yes (Disabling, Other)
  Sender: FDA-Public Use
  Company Number: US-MERCK-0705USA05589

PATIENT
  Age: 66 Year
  Sex: Female

DRUGS (1)
  1. FOSAMAX [Suspect]
     Indication: OSTEOPOROSIS
     Route: 048
     Dates: start: 20030101

REACTIONS (25)
  - ANAEMIA [None]
  - BONE CYST [None]
  - ORAL INFECTION [None]
  - INFECTION [None]
  - OSTEONECROSIS OF JAW [None]
  - TYPE 2 DIABETES MELLITUS [None]
  - HYPERTENSION [None]
  - TRACHEAL DISORDER [None]
  - TOOTH DISORDER [None]
  - MUSCULOSKELETAL PAIN [None]
  - DRUG HYPERSENSITIVITY [None]
  - MOBILITY DECREASED [None]
  - TEMPOROMANDIBULAR JOINT SYNDROME [None]
  - ORAL HERPES [None]
  - RESPIRATORY DISORDER [None]
  - TRACHEOSTOMY INFECTION [None]
  - INGROWING NAIL [None]
  - KIDNEY INFECTION [None]
  - OSTEONECROSIS [None]
  - JOINT DISLOCATION [None]
  - GINGIVAL BLEEDING [None]
  - OSTEOARTHRITIS [None]
  - DENTAL CARIES [None]
  - TRACHEAL PAIN [None]
  - TOOTHACHE [None]
